FAERS Safety Report 23952097 (Version 2)
Quarter: 2024Q3

REPORT INFORMATION
  Report Type: Spontaneous
  Country: US (occurrence: US)
  Receive Date: 20240607
  Receipt Date: 20240905
  Transmission Date: 20241016
  Serious: Yes (Hospitalization, Other)
  Sender: BRISTOL MYERS SQUIBB
  Company Number: US-BRISTOL-MYERS SQUIBB COMPANY-2024-085768

PATIENT
  Age: 26 Day
  Sex: Male

DRUGS (2)
  1. NULOJIX [Suspect]
     Active Substance: BELATACEPT
     Indication: Product used for unknown indication
     Route: 064
     Dates: start: 2020, end: 20240327
  2. NULOJIX [Suspect]
     Active Substance: BELATACEPT
     Route: 063
     Dates: start: 20240420, end: 20240520

REACTIONS (4)
  - Sepsis neonatal [Unknown]
  - Meningitis neonatal [Unknown]
  - Exposure via breast milk [Unknown]
  - Foetal exposure during pregnancy [Unknown]

NARRATIVE: CASE EVENT DATE: 20240422
